FAERS Safety Report 5085163-X (Version None)
Quarter: 2006Q3

REPORT INFORMATION
  Report Type: 
  Country: None (occurrence: None)
  Receive Date: 20060817
  Receipt Date: 20060803
  Transmission Date: 20061208
  Serious: Yes (Hospitalization, Other)
  Sender: FDA-Public Use
  Company Number: 2006BI010357

PATIENT
  Age: 47 Year
  Sex: Female
  Weight: 95.2554 kg

DRUGS (5)
  1. AVONEX [Suspect]
     Indication: MULTIPLE SCLEROSIS
     Dosage: 30 UG;QW;IM
     Route: 030
     Dates: start: 20060630
  2. LIPITOR [Concomitant]
  3. ALLEGRA [Concomitant]
  4. OXYCONTIN [Concomitant]
  5. PERCOCET [Concomitant]

REACTIONS (6)
  - CEREBRAL HAEMORRHAGE [None]
  - CONDITION AGGRAVATED [None]
  - MIGRAINE [None]
  - MUSCULOSKELETAL PAIN [None]
  - NECK PAIN [None]
  - ORGASM ABNORMAL [None]
